FAERS Safety Report 9112185 (Version 1)
Quarter: 2013Q1

REPORT INFORMATION
  Report Type: Spontaneous
  Country: US (occurrence: US)
  Receive Date: 20130219
  Receipt Date: 20130219
  Transmission Date: 20140127
  Serious: No
  Sender: FDA-Public Use
  Company Number: US-BRISTOL-MYERS SQUIBB COMPANY-16656357

PATIENT
  Age: 65 Year
  Sex: Female
  Weight: 88.43 kg

DRUGS (10)
  1. ORENCIA FOR INJ 250 MG/VIAL [Suspect]
     Indication: RHEUMATOID ARTHRITIS
     Dosage: MISSED AN INFUSION IN JAN12 AND RESTARTED MONTHLY IN FEB12,LAST INF ON 14MAY12
     Route: 042
     Dates: start: 201112
  2. CELEBREX [Concomitant]
  3. ARICEPT [Concomitant]
  4. LEXAPRO [Concomitant]
  5. ATORVASTATIN [Concomitant]
  6. NAMENDA [Concomitant]
  7. NASONEX [Concomitant]
     Indication: HYPERSENSITIVITY
     Dosage: SPRAY
  8. ZYRTEC [Concomitant]
     Dosage: 1 DF : 1TAB
  9. SYNTHROID [Concomitant]
  10. LIOTHYRONINE [Concomitant]
     Dosage: LIOTHYRONINE SR

REACTIONS (2)
  - Arthritis [Not Recovered/Not Resolved]
  - Drug dose omission [Unknown]
